FAERS Safety Report 8815307 (Version 3)
Quarter: 2012Q4

REPORT INFORMATION
  Report Type: 
  Country: PT (occurrence: PT)
  Receive Date: 20120928
  Receipt Date: 20121115
  Transmission Date: 20130627
  Serious: Yes (Death, Hospitalization)
  Sender: FDA-Public Use
  Company Number: PT-B.I. PHARMACEUTICALS,INC./RIDGEFIELD-2012-EU-04911PO

PATIENT
  Age: 88 Year
  Sex: Female

DRUGS (11)
  1. PRADAXA [Suspect]
     Indication: CEREBROVASCULAR ACCIDENT PROPHYLAXIS
     Dosage: 220 mg
     Route: 048
     Dates: end: 201207
  2. PRADAXA [Suspect]
     Indication: ATRIAL FIBRILLATION
  3. ATACAND [Concomitant]
     Dosage: 8 mg
  4. LASIX [Concomitant]
     Dosage: 40 mg
  5. CONCOR [Concomitant]
     Dosage: 1.25 mg
  6. TECNOSAL [Concomitant]
  7. AIRTAL [Concomitant]
  8. SOMAZINE [Concomitant]
     Dosage: 3 ml
  9. OPTIMUS LP [Concomitant]
  10. CRESTOR [Concomitant]
  11. SERTRALINE [Concomitant]

REACTIONS (2)
  - Subdural haemorrhage [Fatal]
  - Fall [Unknown]
